FAERS Safety Report 11849141 (Version 1)
Quarter: 2015Q4

REPORT INFORMATION
  Report Type: Spontaneous
  Country: US (occurrence: None)
  Receive Date: 20151217
  Receipt Date: 20151217
  Transmission Date: 20160305
  Serious: No
  Sender: FDA-Public Use
  Company Number: None

PATIENT
  Age: 49 Year
  Sex: Male

DRUGS (14)
  1. MEKINIST [Suspect]
     Active Substance: TRAMETINIB DIMETHYL SULFOXIDE
     Indication: NEOPLASM MALIGNANT
     Route: 048
  2. MORPHINE [Concomitant]
     Active Substance: MORPHINE
  3. PREDNISONE. [Concomitant]
     Active Substance: PREDNISONE
  4. METHOCARBAM [Concomitant]
  5. LEVOFLOXACIN. [Concomitant]
     Active Substance: LEVOFLOXACIN
  6. FLUCONAZOLE. [Concomitant]
     Active Substance: FLUCONAZOLE
  7. OMEPRAZOLE. [Concomitant]
     Active Substance: OMEPRAZOLE
  8. SMZ/TIMP [Concomitant]
  9. DEXAMETHASON [Concomitant]
     Active Substance: DEXAMETHASONE
  10. AMONIUM LAC [Concomitant]
  11. URSODIOL. [Concomitant]
     Active Substance: URSODIOL
  12. STOOL SOFTENER [Concomitant]
     Active Substance: DOCUSATE CALCIUM
  13. POT CL MICRO [Concomitant]
  14. VALACYCLOVIR [Concomitant]
     Active Substance: VALACYCLOVIR HYDROCHLORIDE

REACTIONS (2)
  - Photophobia [None]
  - Visual impairment [None]

NARRATIVE: CASE EVENT DATE: 201512
